FAERS Safety Report 7987587-7 (Version None)
Quarter: 2011Q4

REPORT INFORMATION
  Report Type: 
  Country: None (occurrence: None)
  Receive Date: 20111216
  Receipt Date: 20110419
  Transmission Date: 20120403
  Serious: Yes (Hospitalization)
  Sender: FDA-Public Use
  Company Number: US-BRISTOL-MYERS SQUIBB COMPANY-15683360

PATIENT
  Age: 9 Year
  Sex: Male

DRUGS (6)
  1. TRAZODONE HCL [Concomitant]
     Dosage: DAILY AT BEDTIME.
  2. ADDERALL XR 10 [Concomitant]
     Dosage: 30MG EXTENDED RELEASE.
  3. ADDERALL 5 [Concomitant]
  4. TENEX [Concomitant]
  5. ABILIFY [Suspect]
     Indication: MOOD SWINGS
     Dosage: FOR 3 TO 4 YEARS.ABILIFY PILL .
  6. DEPAKOTE [Concomitant]

REACTIONS (1)
  - TARDIVE DYSKINESIA [None]
